FAERS Safety Report 6222057-8 (Version None)
Quarter: 2009Q2

REPORT INFORMATION
  Report Type: 
  Country: None (occurrence: None)
  Receive Date: 20090608
  Receipt Date: 20090608
  Transmission Date: 20091009
  Serious: No
  Sender: FDA-Public Use
  Company Number: None

PATIENT
  Age: 33 Year
  Sex: Female
  Weight: 56.6996 kg

DRUGS (2)
  1. BOTOX [Suspect]
     Indication: MUSCLE SPASMS
     Dosage: 200 UNITS EVERY 3 MONTHS IM
     Route: 030
     Dates: start: 20050501, end: 20090401
  2. BOTOX [Suspect]
     Indication: MUSCULOSKELETAL PAIN
     Dosage: 200 UNITS EVERY 3 MONTHS IM
     Route: 030
     Dates: start: 20050501, end: 20090401

REACTIONS (6)
  - HYPOAESTHESIA [None]
  - MUSCULAR WEAKNESS [None]
  - PAIN [None]
  - PANIC DISORDER [None]
  - PARAESTHESIA [None]
  - RESPIRATORY DISORDER [None]
